FAERS Safety Report 9280645 (Version 1)
Quarter: 2013Q2

REPORT INFORMATION
  Report Type: Spontaneous
  Country: US (occurrence: None)
  Receive Date: 20130502
  Receipt Date: 20130502
  Transmission Date: 20140414
  Serious: Yes (Other)
  Sender: FDA-Public Use
  Company Number: ADR-2013-00747

PATIENT
  Age: 56 Year
  Sex: Male

DRUGS (3)
  1. BACLOFEN INTRATHECAL [Suspect]
  2. CLONIDINE [Concomitant]
  3. DILAUDID [Concomitant]

REACTIONS (6)
  - Fall [None]
  - Drug withdrawal syndrome [None]
  - Nausea [None]
  - Headache [None]
  - Scab [None]
  - Feeling cold [None]
